FAERS Safety Report 7372668-1 (Version None)
Quarter: 2011Q1

REPORT INFORMATION
  Report Type: 
  Country: None (occurrence: None)
  Receive Date: 20110324
  Receipt Date: 20101015
  Transmission Date: 20110831
  Serious: Yes (Other)
  Sender: FDA-Public Use
  Company Number: US-BAYER-201019411NA

PATIENT
  Sex: Female
  Weight: 54.422 kg

DRUGS (8)
  1. NEXIUM [Concomitant]
  2. NSAID'S [Concomitant]
  3. YAZ [Suspect]
     Indication: CONTRACEPTION
     Dosage: UNK
     Route: 048
     Dates: start: 20060101, end: 20091001
  4. CLARITIN [Concomitant]
     Dosage: UNK
     Dates: start: 20081202
  5. TOPROL-XL [Concomitant]
  6. PREVPAC [Concomitant]
     Dosage: UNK
     Dates: start: 20090420
  7. SECTRAL [Concomitant]
  8. CIPRO [Concomitant]

REACTIONS (6)
  - ABDOMINAL PAIN UPPER [None]
  - GALLBLADDER INJURY [None]
  - NAUSEA [None]
  - CHOLECYSTITIS CHRONIC [None]
  - CHEST PAIN [None]
  - DIARRHOEA [None]
